FAERS Safety Report 13226333 (Version 2)
Quarter: 2017Q2

REPORT INFORMATION
  Report Type: Spontaneous
  Country: US (occurrence: US)
  Receive Date: 20170213
  Receipt Date: 20170509
  Transmission Date: 20170830
  Serious: Yes (Other)
  Sender: FDA-Public Use
  Company Number: US-PFIZER INC-2017057327

PATIENT
  Sex: Female

DRUGS (2)
  1. XELJANZ [Suspect]
     Active Substance: TOFACITINIB CITRATE
     Dosage: 5 MG, UNK
  2. XELJANZ [Suspect]
     Active Substance: TOFACITINIB CITRATE
     Dosage: 5 MG, 2X/DAY

REACTIONS (30)
  - Musculoskeletal stiffness [Unknown]
  - Fatigue [Unknown]
  - Dry mouth [Unknown]
  - Dry eye [Unknown]
  - Goitre [Unknown]
  - Dysphagia [Unknown]
  - Arthralgia [Unknown]
  - Swelling [Unknown]
  - Parotid gland enlargement [Unknown]
  - Crepitations [Unknown]
  - Synovitis [Unknown]
  - Pemphigus [Unknown]
  - Blood creatine phosphokinase increased [Unknown]
  - Spinal pain [Unknown]
  - Tenderness [Unknown]
  - Pain [Not Recovered/Not Resolved]
  - Skin hypopigmentation [Unknown]
  - Dyspnoea [Unknown]
  - Alopecia [Unknown]
  - Rash [Unknown]
  - Photosensitivity reaction [Unknown]
  - Sleep disorder [Unknown]
  - Cardiac murmur [Unknown]
  - Muscular weakness [Unknown]
  - Oedema peripheral [Unknown]
  - Dyspepsia [Unknown]
  - Carpal tunnel syndrome [Unknown]
  - Joint swelling [Unknown]
  - Tenosynovitis [Unknown]
  - Lymphadenopathy [Unknown]
